FAERS Safety Report 9772228 (Version 1)
Quarter: 2013Q4

REPORT INFORMATION
  Report Type: Spontaneous
  Country: GB (occurrence: GB)
  Receive Date: 20131219
  Receipt Date: 20131219
  Transmission Date: 20140711
  Serious: Yes (Hospitalization)
  Sender: FDA-Public Use
  Company Number: GB-TEVA-450317ISR

PATIENT
  Sex: Male

DRUGS (6)
  1. OFLOXACIN [Suspect]
     Indication: URINARY TRACT INFECTION
     Route: 048
  2. WARFARIN [Interacting]
     Indication: ATRIAL FIBRILLATION
  3. SIMVASTATIN [Concomitant]
  4. BISACODYL [Concomitant]
     Dosage: 10 MILLIGRAM DAILY;
  5. KETOCONAZOLE [Concomitant]
     Route: 061
  6. RAMIPRIL [Concomitant]
     Dosage: 5 MILLIGRAM DAILY;

REACTIONS (4)
  - Coagulation time prolonged [Not Recovered/Not Resolved]
  - Epistaxis [Unknown]
  - International normalised ratio increased [Unknown]
  - Drug interaction [Unknown]
